FAERS Safety Report 5211324-2 (Version None)
Quarter: 2007Q1

REPORT INFORMATION
  Report Type: 
  Country: None (occurrence: None)
  Receive Date: 20070111
  Receipt Date: 20070104
  Transmission Date: 20070707
  Serious: Yes (Death, Other)
  Sender: FDA-Public Use
  Company Number: 163-20785-06110781

PATIENT
  Age: 81 Year
  Sex: Male

DRUGS (14)
  1. THALOMID [Suspect]
     Indication: ORAL NEOPLASM
     Dosage: 100 MG, 2 IN 1 D, ORAL
     Route: 048
     Dates: start: 20050721, end: 20050823
  2. PROCRIT [Concomitant]
  3. MULTI-VITAMIN [Concomitant]
  4. ASCORBIC ACID [Concomitant]
  5. ATENOLOL [Concomitant]
  6. ASPIRIN [Concomitant]
  7. FIBER [Concomitant]
  8. FLONASE [Concomitant]
  9. NEXIUM [Concomitant]
  10. VIDAZA [Concomitant]
  11. NEUPOGEN [Concomitant]
  12. LEUKINE [Concomitant]
  13. ZOFRAN [Concomitant]
  14. NEULASTA [Concomitant]

REACTIONS (1)
  - MYELODYSPLASTIC SYNDROME [None]
